FAERS Safety Report 9011337 (Version 1)
Quarter: 2013Q1

REPORT INFORMATION
  Report Type: Spontaneous
  Country: US (occurrence: US)
  Receive Date: 20130111
  Receipt Date: 20130111
  Transmission Date: 20140127
  Serious: Yes (Other)
  Sender: FDA-Public Use
  Company Number: US-009507513-1301USA001617

PATIENT
  Age: 94 Year
  Sex: Female

DRUGS (9)
  1. SINGULAIR [Suspect]
     Indication: PRODUCT USED FOR UNKNOWN INDICATION
     Route: 048
  2. LENDORM [Suspect]
     Route: 048
  3. GLUTAMINE [Suspect]
     Route: 048
  4. ALFAROL [Suspect]
     Route: 048
  5. MUCODYNE [Suspect]
     Route: 048
  6. THEOPHYLLINE [Suspect]
     Route: 048
  7. ALLEGRA [Suspect]
     Route: 048
  8. NORVASC [Suspect]
     Dosage: 5 MG, QD
     Route: 048
  9. MEDICON (DEXTROMETHORPHAN HYDROBROMIDE) [Concomitant]

REACTIONS (5)
  - Peripheral vascular disorder [Unknown]
  - Flushing [Unknown]
  - Dyspnoea [Unknown]
  - Cough [Unknown]
  - Abdominal pain upper [Unknown]
